FAERS Safety Report 7325204-X (Version None)
Quarter: 2011Q1

REPORT INFORMATION
  Report Type: 
  Country: None (occurrence: None)
  Receive Date: 20110302
  Receipt Date: 20110217
  Transmission Date: 20110831
  Serious: Yes (Other)
  Sender: FDA-Public Use
  Company Number: US-JNJFOC-2011000105

PATIENT
  Sex: Female

DRUGS (1)
  1. VISINE TOTALITY MULTI-SYMPTOM RELIEF [Suspect]
     Indication: PRODUCT USED FOR UNKNOWN INDICATION
     Dosage: DAILY DOSE TEXT: UNKNOWN
     Route: 047

REACTIONS (1)
  - BLINDNESS TRANSIENT [None]
